FAERS Safety Report 10069913 (Version 1)
Quarter: 2014Q2

REPORT INFORMATION
  Report Type: Spontaneous
  Country: IT (occurrence: IT)
  Receive Date: 20140410
  Receipt Date: 20140410
  Transmission Date: 20141212
  Serious: Yes (Other)
  Sender: FDA-Public Use
  Company Number: IT-JNJFOC-20140400283

PATIENT
  Age: 50 Year
  Sex: Female

DRUGS (3)
  1. VERMOX [Suspect]
     Indication: SELF INJURIOUS BEHAVIOUR
     Route: 048
     Dates: start: 20140330, end: 20140330
  2. NORFLOXACINA [Suspect]
     Indication: PRODUCT USED FOR UNKNOWN INDICATION
     Route: 048
     Dates: start: 20140330, end: 20140330
  3. BACTRIM FORTE [Suspect]
     Indication: PRODUCT USED FOR UNKNOWN INDICATION
     Route: 048
     Dates: start: 20140330, end: 20140330

REACTIONS (2)
  - Self injurious behaviour [Unknown]
  - Intentional overdose [Unknown]
